FAERS Safety Report 18665576 (Version 2)
Quarter: 2021Q1

REPORT INFORMATION
  Report Type: Other
  Country: US (occurrence: US)
  Receive Date: 20201226
  Receipt Date: 20210204
  Transmission Date: 20210419
  Serious: Yes (Hospitalization)
  Sender: FDA-Public Use
  Company Number: US-ROCHE-2737118

PATIENT
  Sex: Female

DRUGS (1)
  1. XELODA [Suspect]
     Active Substance: CAPECITABINE
     Indication: RECTAL CANCER
     Dosage: TAKE 5 TABLET(S) BY MOUTH TWICE A DAY FOR 14 DAYS EVERY 21 DAY(S) FOR 6 CYCLES
     Route: 048

REACTIONS (1)
  - Metastatic neoplasm [Unknown]
